FAERS Safety Report 16244683 (Version 3)
Quarter: 2020Q4

REPORT INFORMATION
  Report Type: Spontaneous
  Country: JP (occurrence: JP)
  Receive Date: 20190426
  Receipt Date: 20201028
  Transmission Date: 20210113
  Serious: Yes (Hospitalization)
  Sender: FDA-Public Use
  Company Number: JP-BAYER-2019-034805

PATIENT
  Age: 66 Year
  Sex: Male
  Weight: 66.5 kg

DRUGS (8)
  1. PETROLATUM SALICYLATE [Concomitant]
     Indication: DRUG TOXICITY PROPHYLAXIS
     Dosage: UNK
     Dates: start: 20190122, end: 20190215
  2. NEXAVAR [Suspect]
     Active Substance: SORAFENIB
     Indication: HEPATOCELLULAR CARCINOMA
     Dosage: DAILY DOSE 800 MG
     Route: 048
     Dates: start: 20190122, end: 20190215
  3. LIVACT [AMINO ACIDS NOS] [Concomitant]
     Indication: HYPOALBUMINAEMIA
     Dosage: DAILY DOSE 2 DF
     Route: 048
     Dates: start: 20181016
  4. DIFLORASONE DIACETATE. [Concomitant]
     Active Substance: DIFLORASONE DIACETATE
     Indication: PSORIASIS
  5. DERMOVATE [Concomitant]
     Active Substance: CLOBETASOL
     Indication: DRUG TOXICITY PROPHYLAXIS
     Dosage: UNK
     Dates: start: 20190122, end: 20190215
  6. WHITE PETROLATUM [Concomitant]
     Active Substance: PETROLATUM
     Dosage: UNK
     Dates: start: 20190215, end: 20190218
  7. BETAMETHASONE BUTYRATE PROPIONATE [Concomitant]
     Active Substance: BETAMETHASONE BUTYRATE PROPIONATE
     Indication: PSORIASIS
  8. AMINOLEBAN EN [Concomitant]
     Active Substance: UNSPECIFIED INGREDIENT
     Indication: HYPOALBUMINAEMIA
     Dosage: DAILY DOSE 50 G
     Route: 048
     Dates: start: 20190107

REACTIONS (2)
  - Pyrexia [Recovered/Resolved]
  - Psoriasis [Recovering/Resolving]

NARRATIVE: CASE EVENT DATE: 20190215
